FAERS Safety Report 22915651 (Version 2)
Quarter: 2023Q4

REPORT INFORMATION
  Report Type: Spontaneous
  Country: DE (occurrence: DE)
  Receive Date: 20230907
  Receipt Date: 20231025
  Transmission Date: 20240110
  Serious: Yes (Death, Hospitalization, Other)
  Sender: FDA-Public Use
  Company Number: DE-AMGEN-DEUSP2023153618

PATIENT

DRUGS (2)
  1. CARFILZOMIB [Suspect]
     Active Substance: CARFILZOMIB
     Indication: Plasma cell myeloma refractory
     Dosage: UNK
     Route: 065
  2. FILGRASTIM [Suspect]
     Active Substance: FILGRASTIM
     Indication: Product used for unknown indication
     Dosage: UNK
     Route: 065

REACTIONS (17)
  - Death [Fatal]
  - Plasma cell leukaemia [Unknown]
  - Adverse event [Unknown]
  - Unevaluable event [Unknown]
  - Cytopenia [Unknown]
  - Plasma cell myeloma [Unknown]
  - Anaemia [Unknown]
  - Thrombocytopenia [Unknown]
  - Leukopenia [Unknown]
  - Febrile neutropenia [Unknown]
  - Acute kidney injury [Unknown]
  - Nausea [Unknown]
  - Diarrhoea [Unknown]
  - Therapy partial responder [Unknown]
  - Therapy non-responder [Unknown]
  - Blood lactate dehydrogenase increased [Unknown]
  - COVID-19 [Unknown]
